FAERS Safety Report 9209159 (Version 1)
Quarter: 2013Q2

REPORT INFORMATION
  Report Type: Spontaneous
  Country: US (occurrence: US)
  Receive Date: 20130404
  Receipt Date: 20130404
  Transmission Date: 20140414
  Serious: Yes (Hospitalization)
  Sender: FDA-Public Use
  Company Number: PHEH2013US007344

PATIENT
  Age: 16 Year
  Sex: Male

DRUGS (1)
  1. TOBI [Suspect]
     Indication: LUNG DISORDER
     Dosage: 300 MG BID

REACTIONS (1)
  - Sinusitis [Unknown]
